FAERS Safety Report 8095081-0 (Version None)
Quarter: 2012Q1

REPORT INFORMATION
  Report Type: 
  Country: None (occurrence: None)
  Receive Date: 20120131
  Receipt Date: 20120124
  Transmission Date: 20120608
  Serious: Yes (Other)
  Sender: FDA-Public Use
  Company Number: US-BAYER-2011-120806

PATIENT
  Age: 40 Year
  Sex: Female
  Weight: 73.016 kg

DRUGS (1)
  1. YAZ [Suspect]
     Dosage: UNK
     Route: 015

REACTIONS (1)
  - THROMBOSIS [None]
